FAERS Safety Report 6897566-9 (Version None)
Quarter: 2010Q3

REPORT INFORMATION
  Report Type: 
  Country: None (occurrence: None)
  Receive Date: 20100802
  Receipt Date: 20070618
  Transmission Date: 20110219
  Serious: Yes (Other)
  Sender: FDA-Public Use
  Company Number: US-PFIZER INC-2007050245

PATIENT
  Sex: Female
  Weight: 106.36 kg

DRUGS (2)
  1. LYRICA [Suspect]
     Route: 048
     Dates: start: 20070226, end: 20070501
  2. BENADRYL [Suspect]

REACTIONS (3)
  - HYPERSENSITIVITY [None]
  - SWELLING [None]
  - VISION BLURRED [None]
